FAERS Safety Report 12544911 (Version 1)
Quarter: 2016Q3

REPORT INFORMATION
  Report Type: Spontaneous
  Country: JP (occurrence: JP)
  Receive Date: 20160711
  Receipt Date: 20160711
  Transmission Date: 20161109
  Serious: Yes (Hospitalization)
  Sender: FDA-Public Use
  Company Number: JP-GLAXOSMITHKLINE-JP2016JPN095659

PATIENT
  Age: 78 Year
  Sex: Female

DRUGS (12)
  1. REQUIP [Suspect]
     Active Substance: ROPINIROLE HYDROCHLORIDE
     Indication: PARKINSON^S DISEASE
     Dosage: 8 MG, 1D
     Route: 048
     Dates: start: 20141022, end: 20141210
  2. NEUPRO [Suspect]
     Active Substance: ROTIGOTINE
     Dosage: 27 MG, 1D
     Route: 050
     Dates: start: 20130613, end: 20130731
  3. NEUPRO [Suspect]
     Active Substance: ROTIGOTINE
     Dosage: 27 MG, 1D
     Route: 050
     Dates: start: 20141217, end: 20150107
  4. NEUPRO [Suspect]
     Active Substance: ROTIGOTINE
     Dosage: 9 MG, 1D
     Route: 050
     Dates: start: 20150122, end: 20150128
  5. NEUPRO [Suspect]
     Active Substance: ROTIGOTINE
     Indication: PARKINSON^S DISEASE
     Dosage: 9 MG, 1D
     Route: 050
     Dates: start: 20130327, end: 20130424
  6. EC-DOPARL [Concomitant]
     Active Substance: BENSERAZIDE HYDROCHLORIDE\LEVODOPA
     Dosage: UNK
     Dates: start: 200610
  7. NEUPRO [Suspect]
     Active Substance: ROTIGOTINE
     Dosage: 36 MG, 1D
     Route: 050
     Dates: start: 20130904, end: 20141022
  8. NEUPRO [Suspect]
     Active Substance: ROTIGOTINE
     Dosage: 18 MG, 1D
     Route: 050
     Dates: start: 20141210, end: 20141216
  9. NEUPRO [Suspect]
     Active Substance: ROTIGOTINE
     Dosage: 18 MG, 1D
     Route: 050
     Dates: start: 20130425, end: 20130612
  10. NEUPRO [Suspect]
     Active Substance: ROTIGOTINE
     Dosage: 31.5 MG, 1D
     Route: 050
     Dates: start: 20130801, end: 20130904
  11. NEUPRO [Suspect]
     Active Substance: ROTIGOTINE
     Dosage: 18 MG, 1D
     Route: 050
     Dates: start: 20150108, end: 20150121
  12. DOPS (JAPAN) [Concomitant]
     Dosage: UNK
     Dates: start: 200907

REACTIONS (1)
  - Generalised oedema [Recovering/Resolving]

NARRATIVE: CASE EVENT DATE: 201412
